FAERS Safety Report 18252374 (Version 2)
Quarter: 2024Q3

REPORT INFORMATION
  Report Type: Spontaneous
  Country: US (occurrence: None)
  Receive Date: 20200910
  Receipt Date: 20240906
  Transmission Date: 20241016
  Serious: No
  Sender: DOMPE FARMACEUTICI
  Company Number: US-FARMAPROD-202006-0893

PATIENT
  Age: 66 Year
  Sex: Female

DRUGS (13)
  1. OXERVATE [Suspect]
     Active Substance: CENEGERMIN-BKBJ
     Indication: Neurotrophic keratopathy
     Route: 047
     Dates: start: 20200602, end: 20200728
  2. OXERVATE [Suspect]
     Active Substance: CENEGERMIN-BKBJ
     Route: 047
     Dates: start: 20231018
  3. OXERVATE [Suspect]
     Active Substance: CENEGERMIN-BKBJ
  4. RESTASIS [Concomitant]
     Active Substance: CYCLOSPORINE
  5. TYLENOL PM EXTRA STRENGTH [Concomitant]
     Active Substance: ACETAMINOPHEN\DIPHENHYDRAMINE HYDROCHLORIDE
  6. BREZTRI [Concomitant]
     Active Substance: BUDESONIDE\FORMOTEROL\GLYCOPYRROLATE
     Route: 055
  7. XIIDRA [Concomitant]
     Active Substance: LIFITEGRAST
     Dates: start: 202310
  8. LYRICA [Concomitant]
     Active Substance: PREGABALIN
  9. BENADRYL [Concomitant]
     Active Substance: DIPHENHYDRAMINE HYDROCHLORIDE
  10. TYLENOL [Concomitant]
     Active Substance: ACETAMINOPHEN
  11. CELEBREX [Concomitant]
     Active Substance: CELECOXIB
  12. ALBUTEROL SULFATE [Concomitant]
     Active Substance: ALBUTEROL SULFATE
     Dosage: HYDROFLUOROALKANE.
  13. REMICADE [Concomitant]
     Active Substance: INFLIXIMAB

REACTIONS (8)
  - Balance disorder [Unknown]
  - Herpes zoster [Unknown]
  - Chest discomfort [Recovering/Resolving]
  - Dysgeusia [Unknown]
  - Therapy interrupted [Unknown]
  - Nausea [Recovering/Resolving]
  - Diarrhoea [Recovering/Resolving]
  - Muscle spasms [Recovering/Resolving]

NARRATIVE: CASE EVENT DATE: 20231123
